FAERS Safety Report 8877097 (Version 1)
Quarter: 2012Q4

REPORT INFORMATION
  Report Type: Spontaneous
  Country: US (occurrence: None)
  Receive Date: 20121101
  Receipt Date: 20121101
  Transmission Date: 20130627
  Serious: No
  Sender: FDA-Public Use
  Company Number: None

PATIENT
  Age: 36 Year
  Sex: Male
  Weight: 74.5 kg

DRUGS (3)
  1. METHYLPREDNISONE [Suspect]
     Indication: HERNIATED NUCLEUS PULPOSUS
     Dosage: Methylprednisone, one time Epidural Inj.
     Route: 008
     Dates: start: 20120808
  2. METHYLPREDNISONE [Suspect]
     Indication: LOW BACK PAIN
     Dosage: Methylprednisone, one time Epidural Inj.
     Route: 008
     Dates: start: 20120808
  3. METHYLPREDNISONE [Suspect]
     Indication: RADICULOPATHY
     Dosage: Methylprednisone, one time Epidural Inj.
     Route: 008
     Dates: start: 20120808

REACTIONS (2)
  - Product contamination microbial [None]
  - Poor quality drug administered [None]
